FAERS Safety Report 15264553 (Version 4)
Quarter: 2019Q3

REPORT INFORMATION
  Report Type: Report from Study
  Country: JP (occurrence: JP)
  Receive Date: 20180810
  Receipt Date: 20190722
  Transmission Date: 20191004
  Serious: Yes (Hospitalization)
  Sender: FDA-Public Use
  Company Number: JP-ACTELION-A-CH2018-177063

PATIENT
  Age: 66 Year
  Sex: Female
  Weight: 60.5 kg

DRUGS (9)
  1. FLUITRAN [Suspect]
     Active Substance: TRICHLORMETHIAZIDE
     Indication: PULMONARY CONGESTION
     Dosage: 1 MG, QD
     Route: 048
     Dates: start: 20170130
  2. OPSUMIT [Suspect]
     Active Substance: MACITENTAN
     Indication: PULMONARY ARTERIAL HYPERTENSION
     Dosage: 10 MG, QD
     Route: 048
     Dates: start: 20170118, end: 20170204
  3. LUPRAC [Suspect]
     Active Substance: TORSEMIDE
     Dosage: 2 MG, QD
     Route: 048
     Dates: start: 20170108, end: 20170123
  4. ADEMPAS [Suspect]
     Active Substance: RIOCIGUAT
     Dosage: 1 MG, TID
     Route: 048
     Dates: start: 20170211
  5. ADEMPAS [Suspect]
     Active Substance: RIOCIGUAT
     Indication: PULMONARY ARTERIAL HYPERTENSION
     Dosage: 1.5 MG, TID
     Route: 048
     Dates: start: 20170124, end: 20170210
  6. ADEMPAS [Suspect]
     Active Substance: RIOCIGUAT
     Dosage: 1 MG, TID
     Route: 048
     Dates: start: 20170111, end: 20170123
  7. LUPRAC [Suspect]
     Active Substance: TORSEMIDE
     Indication: RIGHT VENTRICULAR FAILURE
     Dosage: 4 MG, QD
     Route: 048
     Dates: start: 20170124, end: 20170209
  8. ADEMPAS [Suspect]
     Active Substance: RIOCIGUAT
     Dosage: 0.5 MG, TID
     Route: 048
     Dates: start: 20170105, end: 20170110
  9. FERROUS CITRATE NA [Concomitant]
     Active Substance: SODIUM FERROUS CITRATE

REACTIONS (3)
  - Pulmonary oedema [Recovering/Resolving]
  - Hypokalaemia [Recovering/Resolving]
  - Oxygen saturation decreased [Recovering/Resolving]

NARRATIVE: CASE EVENT DATE: 20170124
